FAERS Safety Report 13105250 (Version 1)
Quarter: 2017Q1

REPORT INFORMATION
  Report Type: Spontaneous
  Country: SE (occurrence: SE)
  Receive Date: 20170111
  Receipt Date: 20170111
  Transmission Date: 20170428
  Serious: Yes (Other)
  Sender: FDA-Public Use
  Company Number: PHHY2017SE002560

PATIENT
  Age: 69 Year
  Sex: Female

DRUGS (1)
  1. OXALIPLATIN. [Suspect]
     Active Substance: OXALIPLATIN
     Indication: PRODUCT USED FOR UNKNOWN INDICATION
     Route: 065

REACTIONS (5)
  - Stridor [Recovered/Resolved]
  - Paraesthesia [Recovered/Resolved]
  - Lip swelling [Recovered/Resolved]
  - Sensation of foreign body [Recovered/Resolved]
  - Hypoaesthesia [Recovered/Resolved]
